FAERS Safety Report 23744023 (Version 2)
Quarter: 2024Q4

REPORT INFORMATION
  Report Type: Spontaneous
  Country: US (occurrence: US)
  Receive Date: 20240415
  Receipt Date: 20241228
  Transmission Date: 20250115
  Serious: No
  Sender: SANOFI AVENTIS
  Company Number: US-SA-SAC20240411000464

PATIENT
  Age: 85 Year
  Sex: Male

DRUGS (14)
  1. DUPIXENT [Suspect]
     Active Substance: DUPILUMAB
     Indication: Neurodermatitis
     Dosage: 300 MG, QOW
     Route: 058
     Dates: start: 20230208
  2. ALLOPURINOL [Concomitant]
     Active Substance: ALLOPURINOL
  3. AMBIEN [Concomitant]
     Active Substance: ZOLPIDEM TARTRATE
  4. CARISOPRODOL [Concomitant]
     Active Substance: CARISOPRODOL
  5. COZAAR [Concomitant]
     Active Substance: LOSARTAN POTASSIUM
  6. DIGOXIN [Concomitant]
     Active Substance: DIGOXIN
  7. IPRATROPIUM [Concomitant]
     Active Substance: IPRATROPIUM
  8. LIPITOR [Concomitant]
     Active Substance: ATORVASTATIN CALCIUM
  9. PREDNISONE [Concomitant]
     Active Substance: PREDNISONE
  10. VERAPAMIL [Concomitant]
     Active Substance: VERAPAMIL HYDROCHLORIDE
  11. WARFARIN [Concomitant]
     Active Substance: WARFARIN
  12. HYDROXYZINE HYDROCHLORIDE [Concomitant]
     Active Substance: HYDROXYZINE HYDROCHLORIDE
  13. BETAMETH DIPROPIONATE [Concomitant]
     Dosage: UNK
  14. SOMA [Concomitant]
     Active Substance: CARISOPRODOL
     Dosage: UNK

REACTIONS (3)
  - Sleep disorder [Unknown]
  - Sleep disorder due to a general medical condition [Unknown]
  - Drug ineffective [Unknown]
